FAERS Safety Report 4428062-6 (Version None)
Quarter: 2004Q3

REPORT INFORMATION
  Report Type: 
  Country: None (occurrence: None)
  Receive Date: 20040726
  Receipt Date: 20040407
  Transmission Date: 20050211
  Serious: No
  Sender: FDA-Public Use
  Company Number: USA030844730

PATIENT
  Age: 84 Year
  Sex: Female
  Weight: 51 kg

DRUGS (6)
  1. FORTEO [Suspect]
     Indication: OSTEOPOROSIS
     Dosage: 20 UG/DAY
     Dates: start: 20030805
  2. PROCARDIA [Concomitant]
  3. INDERAL [Concomitant]
  4. PRILOSEC [Concomitant]
  5. CALCIUM [Concomitant]
  6. MULTI-VITAMIN [Concomitant]

REACTIONS (4)
  - ABDOMINAL PAIN LOWER [None]
  - CONSTIPATION [None]
  - COUGH [None]
  - NASOPHARYNGITIS [None]
